FAERS Safety Report 5333449-3 (Version None)
Quarter: 2007Q2

REPORT INFORMATION
  Report Type: 
  Country: None (occurrence: None)
  Receive Date: 20070522
  Receipt Date: 20070522
  Transmission Date: 20071010
  Serious: Yes (Hospitalization)
  Sender: FDA-Public Use
  Company Number: None

PATIENT
  Sex: Female
  Weight: 64 kg

DRUGS (5)
  1. CARBOPLATIN [Suspect]
     Dosage: 407 MG
  2. TAXOL [Suspect]
     Dosage: 285 MG
  3. ATIVAN [Concomitant]
  4. DECADRON [Concomitant]
  5. LEVOXYL [Concomitant]

REACTIONS (11)
  - ANOREXIA [None]
  - CONFUSIONAL STATE [None]
  - DEHYDRATION [None]
  - HYPERSENSITIVITY [None]
  - MENTAL STATUS CHANGES [None]
  - MUSCULAR WEAKNESS [None]
  - NAUSEA [None]
  - NEUTROPHIL COUNT ABNORMAL [None]
  - SUPRAVENTRICULAR TACHYCARDIA [None]
  - URINARY TRACT INFECTION [None]
  - VOMITING [None]
